FAERS Safety Report 5885095-0 (Version None)
Quarter: 2008Q3

REPORT INFORMATION
  Report Type: 
  Country: None (occurrence: None)
  Receive Date: 20080916
  Receipt Date: 20080902
  Transmission Date: 20090109
  Serious: Yes (Death, Hospitalization)
  Sender: FDA-Public Use
  Company Number: PHHO1996CA03654

PATIENT
  Sex: Male

DRUGS (2)
  1. SANDIMMUNE [Suspect]
     Dosage: UNSPECIFIED
     Route: 048
     Dates: start: 19960314
  2. FK-506 [Suspect]
     Dosage: UNSPECIFIED
     Route: 065

REACTIONS (4)
  - DEATH [None]
  - SEPSIS [None]
  - TRANSPLANT REJECTION [None]
  - VIRAL INFECTION [None]
